FAERS Safety Report 18273262 (Version 2)
Quarter: 2020Q4

REPORT INFORMATION
  Report Type: Report from Study
  Country: US (occurrence: US)
  Receive Date: 20200916
  Receipt Date: 20201026
  Transmission Date: 20210113
  Serious: Yes (Death, Other)
  Sender: FDA-Public Use
  Company Number: US-GILEAD-2020-0494903

PATIENT
  Sex: Male
  Weight: 69.39 kg

DRUGS (4)
  1. TREPROSTINIL. [Concomitant]
     Active Substance: TREPROSTINIL
  2. ELIQUIS [Concomitant]
     Active Substance: APIXABAN
  3. TADALAFIL. [Concomitant]
     Active Substance: TADALAFIL
  4. AMBRISENTAN [Suspect]
     Active Substance: AMBRISENTAN
     Indication: PULMONARY ARTERIAL HYPERTENSION
     Dosage: 5 MG, QD
     Route: 065
     Dates: start: 20200603

REACTIONS (2)
  - Acute respiratory failure [Fatal]
  - Cardiogenic shock [Fatal]
